FAERS Safety Report 20705067 (Version 2)
Quarter: 2022Q3

REPORT INFORMATION
  Report Type: Report from Study
  Country: AT (occurrence: AT)
  Receive Date: 20220413
  Receipt Date: 20220711
  Transmission Date: 20221026
  Serious: Yes (Death, Hospitalization)
  Sender: FDA-Public Use
  Company Number: AT-ROCHE-2771980

PATIENT
  Age: 55 Year
  Sex: Female
  Weight: 100.5 kg

DRUGS (42)
  1. CARBOPLATIN [Suspect]
     Active Substance: CARBOPLATIN
     Indication: Small cell lung cancer extensive stage
     Dosage: UNK
     Dates: start: 20211210, end: 20211210
  2. CARBOPLATIN [Suspect]
     Active Substance: CARBOPLATIN
     Dosage: 853.8 MG
     Route: 065
     Dates: start: 20210105
  3. ATEZOLIZUMAB [Suspect]
     Active Substance: ATEZOLIZUMAB
     Indication: Small cell lung cancer extensive stage
     Dosage: 1200 MG, EVERY 3 WEEKS (START AND END DATE OF MOST RECENT DOSE OF STUDY DRUG PRIOR TO AE 26JAN2021 )
     Route: 041
     Dates: start: 20210105
  4. ATEZOLIZUMAB [Suspect]
     Active Substance: ATEZOLIZUMAB
     Dosage: 1200 MG
  5. ETOPOSIDE [Suspect]
     Active Substance: ETOPOSIDE
     Indication: Small cell lung cancer extensive stage
     Dosage: UNK
     Dates: start: 20211210
  6. ETOPOSIDE [Suspect]
     Active Substance: ETOPOSIDE
     Dosage: 212 MG
     Route: 042
     Dates: start: 20210105
  7. AMLODIPINE [Concomitant]
     Active Substance: AMLODIPINE BESYLATE
     Dosage: UNK UNK, 1X/DAY
     Dates: start: 200911
  8. ARANESP [Concomitant]
     Active Substance: DARBEPOETIN ALFA
     Indication: Prophylaxis
     Dosage: UNK, 1X/DAY
     Dates: start: 20210215, end: 20210215
  9. ARANESP [Concomitant]
     Active Substance: DARBEPOETIN ALFA
     Dosage: UNK UNK, 1X/DAY
     Dates: start: 20210319, end: 20210319
  10. CALCIDURAN [ASCORBIC ACID;CALCIUM PHOSPHATE;CITRIC ACID;COLECALCIFEROL [Concomitant]
     Dosage: UNK UNK, 1X/DAY
     Dates: start: 20210224
  11. CARVEDILOL [Concomitant]
     Active Substance: CARVEDILOL
     Dosage: UNK UNK, 1X/DAY
     Dates: start: 200905
  12. COMIRNATY [Concomitant]
     Active Substance: TOZINAMERAN
     Indication: COVID-19 immunisation
     Dosage: DOSE NUMBER UNKNOWN, SINGLE (BIONTECH/PFIZER )
     Dates: start: 20210327, end: 20210327
  13. CYCLOPHOSPHAMIDE [Concomitant]
     Active Substance: CYCLOPHOSPHAMIDE
     Dosage: UNK
     Dates: start: 20210713, end: 20210915
  14. DEXAMETHASONE [Concomitant]
     Active Substance: DEXAMETHASONE
     Dosage: UNK
     Dates: start: 20210224, end: 20210226
  15. DEXAMETHASONE [Concomitant]
     Active Substance: DEXAMETHASONE
     Dosage: UNK
     Dates: start: 20210126, end: 20210128
  16. DEXAMETHASONE [Concomitant]
     Active Substance: DEXAMETHASONE
     Dosage: UNK UNK, 1X/DAY
     Dates: start: 20210317, end: 20210319
  17. DEXABENE [Concomitant]
     Indication: Parotitis
     Dosage: UNK
     Dates: start: 20210217, end: 20210218
  18. EPIRUBICIN [Concomitant]
     Active Substance: EPIRUBICIN
     Dosage: UNK
     Dates: start: 20210713, end: 20210914
  19. GABAPENTIN [Concomitant]
     Active Substance: GABAPENTIN
     Dosage: UNK UNK, 2X/DAY
     Dates: start: 201809
  20. HYDROMORPHONE HYDROCHLORIDE [Concomitant]
     Active Substance: HYDROMORPHONE HYDROCHLORIDE
     Dosage: 2 MG, 2X/DAY (RET.)
     Dates: start: 20210317
  21. HYDROMORPHONE HYDROCHLORIDE [Concomitant]
     Active Substance: HYDROMORPHONE HYDROCHLORIDE
     Dosage: 1.3 MG
     Dates: start: 20210319
  22. JANUMET [Concomitant]
     Active Substance: METFORMIN HYDROCHLORIDE\SITAGLIPTIN PHOSPHATE
     Dosage: UNK UNK, 2X/DAY
     Dates: start: 201706
  23. LANSOBENE [Concomitant]
     Dosage: UNK UNK, 1X/DAY
     Dates: start: 200509
  24. EDOXABAN TOSYLATE [Concomitant]
     Active Substance: EDOXABAN TOSYLATE
     Dosage: UNK, 1X/DAY
     Dates: start: 202007, end: 20210126
  25. EDOXABAN TOSYLATE [Concomitant]
     Active Substance: EDOXABAN TOSYLATE
     Dosage: UNK UNK, 1X/DAY
     Dates: start: 20210129
  26. POLYETHYLENE GLYCOL 3350\POTASSIUM CHLORIDE\SODIUM BICARBONATE\SODIUM [Concomitant]
     Active Substance: POLYETHYLENE GLYCOL 3350\POTASSIUM CHLORIDE\SODIUM BICARBONATE\SODIUM CHLORIDE
     Dosage: UNK UNK, 1X/DAY
     Dates: start: 20210319
  27. NEULASTA [Concomitant]
     Active Substance: PEGFILGRASTIM
     Dosage: UNK UNK, 1X/DAY
     Dates: start: 20210227, end: 20210227
  28. NEULASTA [Concomitant]
     Active Substance: PEGFILGRASTIM
     Dosage: UNK UNK, 1X/DAY
     Dates: start: 20210320, end: 20210320
  29. NOVALGIN (METAMIZOLE SODIUM) [Concomitant]
     Active Substance: METAMIZOLE SODIUM
     Dosage: UNK
     Dates: start: 202012
  30. CHOLECALCIFEROL [Concomitant]
     Active Substance: CHOLECALCIFEROL
     Indication: Prophylaxis
     Dosage: UNK UNK, 1X/DAY
     Dates: start: 20210225
  31. ONDANSETRON [Concomitant]
     Active Substance: ONDANSETRON
     Dosage: UNK
     Dates: start: 20210126, end: 20210128
  32. ONDANSETRON [Concomitant]
     Active Substance: ONDANSETRON
     Dosage: UNK
     Dates: start: 20210129, end: 20210202
  33. ONDANSETRON [Concomitant]
     Active Substance: ONDANSETRON
     Dosage: UNK
     Dates: start: 20210224, end: 20210226
  34. ONDANSETRON [Concomitant]
     Active Substance: ONDANSETRON
     Dosage: UNK UNK, 1X/DAY
     Dates: start: 20210227, end: 20210303
  35. ONDANSETRON [Concomitant]
     Active Substance: ONDANSETRON
     Dosage: UNK, 1X/DAY
     Dates: start: 20210317, end: 20210324
  36. ONDANSETRON [Concomitant]
     Active Substance: ONDANSETRON
     Dosage: 16 MG, 1X/DAY
     Dates: start: 20210320
  37. ONDANSETRON [Concomitant]
     Active Substance: ONDANSETRON
     Dosage: UNK
     Dates: start: 20210326
  38. SPIRIVA [Concomitant]
     Active Substance: TIOTROPIUM BROMIDE MONOHYDRATE
     Dosage: UNK UNK, 1X/DAY
     Dates: start: 20201203
  39. TEGRETOL [Concomitant]
     Active Substance: CARBAMAZEPINE
     Dosage: UNK UNK, 2X/DAY
     Dates: start: 202011
  40. VINCRISTINE [Concomitant]
     Active Substance: VINCRISTINE
     Dosage: UNK
     Dates: start: 20210713, end: 20210914
  41. XGEVA [Concomitant]
     Active Substance: DENOSUMAB
     Dosage: UNK, 1X/DAY
     Dates: start: 20210226, end: 20210226
  42. XGEVA [Concomitant]
     Active Substance: DENOSUMAB
     Dosage: UNK, 1X/DAY
     Dates: start: 20210319, end: 20210319

REACTIONS (6)
  - Death [Fatal]
  - Parotitis [Not Recovered/Not Resolved]
  - Anaemia [Not Recovered/Not Resolved]
  - Platelet count decreased [Recovered/Resolved]
  - Pyrexia [Recovered/Resolved]
  - Chest pain [Not Recovered/Not Resolved]

NARRATIVE: CASE EVENT DATE: 20210213
